FAERS Safety Report 13073783 (Version 3)
Quarter: 2017Q1

REPORT INFORMATION
  Report Type: Spontaneous
  Country: FR (occurrence: FR)
  Receive Date: 20161229
  Receipt Date: 20170316
  Transmission Date: 20170428
  Serious: Yes (Other)
  Sender: FDA-Public Use
  Company Number: FR-PFIZER INC-2016597356

PATIENT
  Age: 67 Year
  Sex: Male

DRUGS (12)
  1. MOVICOL [Concomitant]
     Active Substance: POLYETHYLENE GLYCOL 3350\POTASSIUM CHLORIDE\SODIUM BICARBONATE\SODIUM CHLORIDE
     Dosage: UNK
  2. ADVAGRAF [Suspect]
     Active Substance: TACROLIMUS
     Dosage: 6 MG, 1X/DAY
     Route: 048
  3. ANSATIPINE [Suspect]
     Active Substance: RIFABUTIN
     Indication: TUBERCULOSIS
     Dosage: 300 MG, 1X/DAY
     Route: 048
     Dates: start: 20161107, end: 20161118
  4. CORDARONE [Suspect]
     Active Substance: AMIODARONE HYDROCHLORIDE
     Dosage: 200 MG, 1X/DAY
     Route: 065
  5. SOLUPRED [Suspect]
     Active Substance: PREDNISOLONE
     Dosage: 3 DF, 1X/DAY
  6. VITAMIN B1 W/VITAMIN B6 [Concomitant]
     Active Substance: PYRIDOXINE HYDROCHLORIDE\THIAMINE HYDROCHLORIDE
     Dosage: UNK
  7. ANSATIPINE [Suspect]
     Active Substance: RIFABUTIN
     Dosage: 300 MG, 1X/DAY
     Route: 048
     Dates: start: 20161125
  8. ROVALCYTE [Suspect]
     Active Substance: VALGANCICLOVIR HYDROCHLORIDE
     Dosage: 450 MG, 2X/DAY
     Route: 048
     Dates: start: 201608
  9. KARDEGIC [Concomitant]
     Active Substance: ASPIRIN LYSINE
     Dosage: 75 MG, 1X/DAY
  10. ANSATIPINE [Suspect]
     Active Substance: RIFABUTIN
     Dosage: 600 MG, 1X/DAY
     Route: 048
     Dates: start: 20161119, end: 20161124
  11. CERTICAN [Suspect]
     Active Substance: EVEROLIMUS
     Dosage: 1 MG, 1X/DAY
     Route: 048
  12. RIMIFON [Suspect]
     Active Substance: ISONIAZID
     Dosage: 200 MG, 1X/DAY
     Route: 065
     Dates: start: 20161107

REACTIONS (1)
  - Cholestasis [Not Recovered/Not Resolved]

NARRATIVE: CASE EVENT DATE: 20161122
